FAERS Safety Report 14661821 (Version 2)
Quarter: 2018Q2

REPORT INFORMATION
  Report Type: Report from Study
  Country: MX (occurrence: MX)
  Receive Date: 20180320
  Receipt Date: 20180406
  Transmission Date: 20180711
  Serious: Yes (Death, Hospitalization)
  Sender: FDA-Public Use
  Company Number: MX-INCYTE CORPORATION-2018IN002596

PATIENT

DRUGS (2)
  1. CYCLOSPORINE. [Concomitant]
     Active Substance: CYCLOSPORINE
     Indication: PRODUCT USED FOR UNKNOWN INDICATION
     Dosage: UNK
     Route: 065
  2. JAKAVI [Suspect]
     Active Substance: RUXOLITINIB
     Indication: BONE MARROW DISORDER
     Dosage: 1 DF, QD
     Route: 065
     Dates: start: 20180228

REACTIONS (4)
  - Syncope [Unknown]
  - Off label use [Unknown]
  - Lung infection [Unknown]
  - Respiratory arrest [Fatal]

NARRATIVE: CASE EVENT DATE: 20180316
